FAERS Safety Report 5499435-8 (Version None)
Quarter: 2007Q4

REPORT INFORMATION
  Report Type: 
  Country: None (occurrence: None)
  Receive Date: 20071026
  Receipt Date: 20071022
  Transmission Date: 20080405
  Serious: Yes (Other)
  Sender: FDA-Public Use
  Company Number: PHEH2007US13077

PATIENT
  Age: 28 Year
  Sex: Female

DRUGS (4)
  1. FEMARA [Suspect]
     Indication: ENDOMETRIOSIS
     Dosage: 2.5 MG, QD
     Dates: start: 20070504, end: 20071001
  2. NORETHINDRONE [Concomitant]
     Indication: ENDOMETRIOSIS
     Dosage: 2.5 MG, QD
     Dates: start: 20070504, end: 20071001
  3. BACLOFEN [Concomitant]
     Indication: PELVIC DISCOMFORT
  4. NORTRIPTYLINE HCL [Concomitant]
     Indication: PELVIC DISCOMFORT

REACTIONS (8)
  - DIPLOPIA [None]
  - EYE PAIN [None]
  - MYOPIA [None]
  - OPTIC NEURITIS [None]
  - PHOTOPSIA [None]
  - VISION BLURRED [None]
  - VISUAL ACUITY REDUCED [None]
  - VITREOUS FLOATERS [None]
